FAERS Safety Report 7337071-9 (Version None)
Quarter: 2011Q1

REPORT INFORMATION
  Report Type: 
  Country: None (occurrence: None)
  Receive Date: 20110308
  Receipt Date: 20110223
  Transmission Date: 20110831
  Serious: Yes (Hospitalization, Other)
  Sender: FDA-Public Use
  Company Number: JP-BAYER-2011-008092

PATIENT
  Age: 68 Year
  Sex: Male
  Weight: 162 kg

DRUGS (3)
  1. NEXAVAR [Suspect]
     Indication: HEPATIC NEOPLASM MALIGNANT
     Dosage: 400 MG, QD
     Route: 048
     Dates: start: 20101124, end: 20101207
  2. NEXAVAR [Suspect]
     Dosage: 400 MG, BID
     Route: 048
     Dates: start: 20101208, end: 20101223
  3. BARACLUDE [Concomitant]
     Dosage: DAILY DOSE .5 MG
     Route: 048
     Dates: start: 20090403

REACTIONS (1)
  - TOXIC SKIN ERUPTION [None]
